FAERS Safety Report 4386909-6 (Version None)
Quarter: 2004Q2

REPORT INFORMATION
  Report Type: 
  Country: None (occurrence: None)
  Receive Date: 20040628
  Receipt Date: 20040628
  Transmission Date: 20050107
  Serious: Yes (Life-Threatening, Hospitalization)
  Sender: FDA-Public Use
  Company Number: None

PATIENT
  Age: 70 Year
  Sex: Female
  Weight: 61.2356 kg

DRUGS (5)
  1. TRAMADOL HCL [Suspect]
     Indication: NEUROPATHIC PAIN
     Dosage: 100 MG QHS 047
     Dates: start: 20030717, end: 20040507
  2. AMITRIPTYLINE HCL [Suspect]
     Indication: NEUROPATHIC PAIN
     Dosage: 10 MG QHS 047
     Dates: start: 20040220, end: 20040507
  3. ACETAMINOPHEN W/ CODEINE [Concomitant]
  4. LIDOCAINE [Concomitant]
  5. NAPROXEN [Concomitant]

REACTIONS (4)
  - BLOOD PRESSURE INCREASED [None]
  - HEPATIC ENZYME INCREASED [None]
  - PLEURISY [None]
  - PULMONARY INFARCTION [None]
